FAERS Safety Report 4556980-7 (Version None)
Quarter: 2005Q1

REPORT INFORMATION
  Report Type: 
  Country: None (occurrence: None)
  Receive Date: 20050108
  Receipt Date: 20050104
  Transmission Date: 20050727
  Serious: Yes (Hospitalization)
  Sender: FDA-Public Use
  Company Number: 200510016BFR

PATIENT
  Age: 80 Year
  Sex: Male

DRUGS (5)
  1. CIPROFLOXACIN HCL [Suspect]
     Indication: URINARY TRACT INFECTION
     Dosage: 1 G, TOTAL DAILY , ORAL
     Route: 048
     Dates: start: 20041116, end: 20041122
  2. OFLOXACIN [Suspect]
     Indication: URINARY TRACT INFECTION
     Dosage: 200 MG , TOTAL DAILY , ORAL
     Route: 048
     Dates: start: 20041128, end: 20041202
  3. BRISTOPEN [Concomitant]
  4. NIFLURIL [Concomitant]
  5. ACUPAN [Concomitant]

REACTIONS (4)
  - ALANINE AMINOTRANSFERASE INCREASED [None]
  - ASPARTATE AMINOTRANSFERASE INCREASED [None]
  - DERMATITIS EXFOLIATIVE [None]
  - HAEMOGLOBIN DECREASED [None]
